FAERS Safety Report 16957717 (Version 5)
Quarter: 2021Q2

REPORT INFORMATION
  Report Type: Spontaneous
  Country: FR (occurrence: FR)
  Receive Date: 20191024
  Receipt Date: 20210606
  Transmission Date: 20210716
  Serious: Yes (Other)
  Sender: FDA-Public Use
  Company Number: FR-JNJFOC-20190806437

PATIENT
  Age: 62 Year
  Sex: Male

DRUGS (11)
  1. XEPLION [Suspect]
     Active Substance: PALIPERIDONE PALMITATE
     Route: 030
  2. XEPLION [Suspect]
     Active Substance: PALIPERIDONE PALMITATE
     Indication: SCHIZOAFFECTIVE DISORDER
     Route: 030
     Dates: start: 20190404
  3. SERESTA [Concomitant]
     Active Substance: OXAZEPAM
     Indication: ANXIETY
     Route: 065
  4. SERESTA [Concomitant]
     Active Substance: OXAZEPAM
     Dosage: 2X50MG
     Route: 048
     Dates: start: 2000
  5. XEPLION [Suspect]
     Active Substance: PALIPERIDONE PALMITATE
     Indication: SCHIZOPHRENIA
     Route: 030
     Dates: start: 2019
  6. XEPLION [Suspect]
     Active Substance: PALIPERIDONE PALMITATE
     Route: 030
     Dates: start: 202002
  7. XEPLION [Suspect]
     Active Substance: PALIPERIDONE PALMITATE
     Dosage: FROM 1.5 YEARS
     Route: 030
  8. RAMIPRIL. [Concomitant]
     Active Substance: RAMIPRIL
     Indication: HYPERTENSION
     Route: 048
     Dates: start: 2005
  9. RISPERIDONE. [Concomitant]
     Active Substance: RISPERIDONE
     Indication: SCHIZOPHRENIA
  10. DEPAKOTE [Concomitant]
     Active Substance: DIVALPROEX SODIUM
     Indication: DRUG THERAPY
     Route: 048
     Dates: start: 2000
  11. LEPTICUR [Concomitant]
     Active Substance: TROPATEPINE HYDROCHLORIDE

REACTIONS (8)
  - Parkinsonian gait [Not Recovered/Not Resolved]
  - Hallucination [Not Recovered/Not Resolved]
  - Lumbar spinal stenosis [Unknown]
  - Tongue dry [Unknown]
  - Drug ineffective [Unknown]
  - Muscle rigidity [Unknown]
  - Oedema peripheral [Unknown]
  - Tachycardia [Unknown]
